FAERS Safety Report 15314658 (Version 1)
Quarter: 2018Q3

REPORT INFORMATION
  Report Type: Spontaneous
  Country: DE (occurrence: DE)
  Receive Date: 20180824
  Receipt Date: 20180824
  Transmission Date: 20181010
  Serious: Yes (Other)
  Sender: FDA-Public Use
  Company Number: DE-AUROBINDO-AUR-APL-2018-043158

PATIENT
  Age: 25 Year
  Sex: Female

DRUGS (1)
  1. CEFUROXIME FILM?COATED TABLET [Suspect]
     Active Substance: CEFUROXIME
     Indication: PRODUCT USED FOR UNKNOWN INDICATION
     Dosage: 500 MILLIGRAM, UNK
     Route: 065

REACTIONS (2)
  - Ocular icterus [Not Recovered/Not Resolved]
  - Blister [Recovering/Resolving]
